FAERS Safety Report 13046124 (Version 2)
Quarter: 2017Q1

REPORT INFORMATION
  Report Type: Spontaneous
  Country: CA (occurrence: CA)
  Receive Date: 20161220
  Receipt Date: 20170209
  Transmission Date: 20170428
  Serious: Yes (Life-Threatening, Hospitalization, Other)
  Sender: FDA-Public Use
  Company Number: CA-JNJFOC-20161215202

PATIENT
  Age: 77 Year
  Sex: Male
  Weight: 85 kg

DRUGS (3)
  1. SYNTHROID [Concomitant]
     Active Substance: LEVOTHYROXINE SODIUM
  2. IBRUTINIB [Suspect]
     Active Substance: IBRUTINIB
     Indication: CHRONIC LYMPHOCYTIC LEUKAEMIA
     Dosage: 1 YEAR ON IBRUTINIB
     Route: 048
     Dates: start: 201512
  3. VALTREX [Concomitant]
     Active Substance: VALACYCLOVIR HYDROCHLORIDE
     Dates: start: 20160927

REACTIONS (3)
  - Hepatitis B core antibody positive [Unknown]
  - Aplasia pure red cell [Recovered/Resolved]
  - Appendicitis [Unknown]

NARRATIVE: CASE EVENT DATE: 201612
